FAERS Safety Report 25325382 (Version 7)
Quarter: 2025Q3

REPORT INFORMATION
  Report Type: Report from Study
  Country: US (occurrence: US)
  Receive Date: 20250516
  Receipt Date: 20250908
  Transmission Date: 20251021
  Serious: Yes (Other)
  Sender: DECIPHERA PHARMACEUTICALS
  Company Number: US-DECIPHERA PHARMACEUTICALS LLC-2025US000560

PATIENT
  Age: 43 Year
  Sex: Female

DRUGS (3)
  1. ROMVIMZA [Suspect]
     Active Substance: VIMSELTINIB
     Indication: Connective tissue neoplasm
     Dosage: 30 MILLIGRAM, TWICE WEEKLY
     Route: 048
     Dates: start: 20250506, end: 2025
  2. ROMVIMZA [Suspect]
     Active Substance: VIMSELTINIB
     Indication: Soft tissue neoplasm
     Dosage: 14 MILLIGRAM, TWICE WEEKLY
     Route: 048
     Dates: start: 2025, end: 2025
  3. ROMVIMZA [Suspect]
     Active Substance: VIMSELTINIB
     Indication: Giant cell tumour of tendon sheath
     Dosage: 30 MILLIGRAM, TWICE WEEKLY
     Route: 048
     Dates: start: 2025, end: 20250610

REACTIONS (15)
  - Cutaneous lupus erythematosus [Recovered/Resolved]
  - Colitis [Unknown]
  - Pain in extremity [Unknown]
  - Orbital oedema [Not Recovered/Not Resolved]
  - Nausea [Unknown]
  - Abdominal pain upper [Recovering/Resolving]
  - Swelling face [Unknown]
  - Eye swelling [Recovered/Resolved]
  - Blood blister [Unknown]
  - Abdominal pain [Unknown]
  - Decreased appetite [Unknown]
  - Diarrhoea [Recovered/Resolved]
  - Peripheral swelling [Unknown]
  - Fatigue [Unknown]
  - Insomnia [Not Recovered/Not Resolved]

NARRATIVE: CASE EVENT DATE: 20250101
